FAERS Safety Report 6082487-4 (Version None)
Quarter: 2009Q1

REPORT INFORMATION
  Report Type: 
  Country: None (occurrence: None)
  Receive Date: 20090202
  Receipt Date: 20080116
  Transmission Date: 20090719
  Serious: No
  Sender: FDA-Public Use
  Company Number: 265110

PATIENT
  Age: 70 Year
  Sex: Male
  Weight: 77.1 kg

DRUGS (1)
  1. NOVOLOG [Suspect]
     Indication: TYPE 1 DIABETES MELLITUS
     Dosage: 18 IU, QD, SUBCUTAN.-PUMP
     Dates: start: 19950101

REACTIONS (1)
  - BLOOD GLUCOSE INCREASED [None]
